FAERS Safety Report 21689199 (Version 2)
Quarter: 2022Q4

REPORT INFORMATION
  Report Type: Spontaneous
  Country: AU (occurrence: AU)
  Receive Date: 20221206
  Receipt Date: 20221209
  Transmission Date: 20230113
  Serious: Yes (Other)
  Sender: FDA-Public Use
  Company Number: AU-BAXTER-2022BAX025104

PATIENT

DRUGS (8)
  1. SODIUM CHLORIDE [Suspect]
     Active Substance: SODIUM CHLORIDE
     Indication: Medication dilution
     Dosage: C1D1 AT AN UNSPECIFIED DOSE AND FREQUENCY
     Route: 065
     Dates: start: 20221115, end: 20221115
  2. SODIUM CHLORIDE [Suspect]
     Active Substance: SODIUM CHLORIDE
     Dosage: C2D1 AT AN UNSPECIFIED DOSE AND FREQUENCY
     Route: 065
     Dates: start: 20221125, end: 20221125
  3. DOCETAXEL [Suspect]
     Active Substance: DOCETAXEL
     Dosage: C1D1, 152.25 MG
     Route: 065
     Dates: start: 20221115, end: 20221115
  4. DOCETAXEL [Suspect]
     Active Substance: DOCETAXEL
     Dosage: C2D1, 152.25 MG
     Route: 065
     Dates: start: 20221125, end: 20221125
  5. DEXAMETHASONE [Suspect]
     Active Substance: DEXAMETHASONE
     Dosage: 20 MG
     Route: 042
     Dates: start: 20221115
  6. DEXAMETHASONE [Suspect]
     Active Substance: DEXAMETHASONE
     Dosage: UNK
     Route: 042
     Dates: start: 20221125
  7. PHENERGAN [Suspect]
     Active Substance: PROMETHAZINE HYDROCHLORIDE
     Dosage: 12.5 MG
     Route: 042
     Dates: start: 20221115
  8. PHENERGAN [Suspect]
     Active Substance: PROMETHAZINE HYDROCHLORIDE
     Dosage: UNK
     Route: 042
     Dates: start: 20221125

REACTIONS (9)
  - Adverse reaction [Unknown]
  - Flushing [Unknown]
  - Dyspnoea [Unknown]
  - Cough [Unknown]
  - Erythema [Unknown]
  - Tachycardia [Unknown]
  - Crepitations [Unknown]
  - Back pain [Recovered/Resolved]
  - Chest discomfort [Recovered/Resolved]

NARRATIVE: CASE EVENT DATE: 20221115
